FAERS Safety Report 21519154 (Version 1)
Quarter: 2022Q4

REPORT INFORMATION
  Report Type: Spontaneous
  Country: US (occurrence: US)
  Receive Date: 20221028
  Receipt Date: 20221028
  Transmission Date: 20230113
  Serious: No
  Sender: FDA-Public Use
  Company Number: ALC2022US004194

PATIENT
  Age: 88 Year
  Sex: Female

DRUGS (4)
  1. INVELTYS [Suspect]
     Active Substance: LOTEPREDNOL ETABONATE
     Indication: Cataract operation
     Dosage: 1 DROP 2X/DAY, IN SURGICAL EYE MORNING AND NIGHT FOR 14 DAYS
     Route: 047
     Dates: start: 20220609, end: 20220623
  2. INVELTYS [Suspect]
     Active Substance: LOTEPREDNOL ETABONATE
     Dosage: 1 DROP, 1X/DAY IN MORNING ONLY FOR 14 DAYS
     Route: 065
     Dates: start: 20220624
  3. UNSPECFIED EYE DROP [Concomitant]
     Indication: Product used for unknown indication
     Route: 065
  4. UNSPECFIED EYE DROP [Concomitant]
     Route: 065

REACTIONS (3)
  - Off label use [Not Recovered/Not Resolved]
  - Liquid product physical issue [Not Recovered/Not Resolved]
  - Product packaging quantity issue [Not Recovered/Not Resolved]

NARRATIVE: CASE EVENT DATE: 20220609
